FAERS Safety Report 10646332 (Version 1)
Quarter: 2014Q4

REPORT INFORMATION
  Report Type: Spontaneous
  Country: US (occurrence: US)
  Receive Date: 20141211
  Receipt Date: 20141211
  Transmission Date: 20150529
  Serious: Yes (Other)
  Sender: FDA-Public Use
  Company Number: US-BAYER-2014-179881

PATIENT
  Age: 41 Year
  Sex: Female

DRUGS (2)
  1. MIRENA [Suspect]
     Active Substance: LEVONORGESTREL
     Dosage: 20 MCG/24HR, CONT
     Route: 015
     Dates: start: 20141113, end: 20141120
  2. BENADRYL [Concomitant]
     Active Substance: DIPHENHYDRAMINE HYDROCHLORIDE
     Dosage: UNK
     Route: 048
     Dates: start: 201411

REACTIONS (8)
  - Rash [Recovering/Resolving]
  - Hypersensitivity [Recovering/Resolving]
  - Cold sweat [Recovering/Resolving]
  - Urticaria [Recovering/Resolving]
  - Rash vesicular [Recovering/Resolving]
  - Dry skin [None]
  - Skin discolouration [None]
  - Skin disorder [None]

NARRATIVE: CASE EVENT DATE: 201411
